FAERS Safety Report 20781923 (Version 6)
Quarter: 2022Q4

REPORT INFORMATION
  Report Type: Other
  Country: GB (occurrence: GB)
  Receive Date: 20220504
  Receipt Date: 20221221
  Transmission Date: 20230113
  Serious: Yes (Life-Threatening, Hospitalization, Disabling, Other)
  Sender: FDA-Public Use
  Company Number: None

PATIENT
  Age: 54 Year
  Sex: Female
  Weight: 80 kg

DRUGS (36)
  1. OMEPRAZOLE [Interacting]
     Active Substance: OMEPRAZOLE
     Indication: Reflux laryngitis
     Dosage: UNK
     Route: 065
     Dates: start: 20190118, end: 20190120
  2. OMEPRAZOLE [Interacting]
     Active Substance: OMEPRAZOLE
     Indication: Gastrooesophageal reflux disease
     Dosage: 20 MILLIGRAM, QD
     Route: 048
     Dates: start: 20190118, end: 20190120
  3. OMEPRAZOLE [Interacting]
     Active Substance: OMEPRAZOLE
     Dosage: 200 MILLIGRAM, QD
     Route: 048
  4. OMEPRAZOLE [Interacting]
     Active Substance: OMEPRAZOLE
     Dosage: UNK
     Route: 065
  5. SOLIFENACIN SUCCINATE [Interacting]
     Active Substance: SOLIFENACIN SUCCINATE
     Indication: Product used for unknown indication
     Dosage: UNK 82 (FILM-COATED TABLET)
     Route: 065
  6. SOLIFENACIN SUCCINATE [Interacting]
     Active Substance: SOLIFENACIN SUCCINATE
     Dosage: UNK UNK, UNKNOWN FREQ.(FILM-COATED TABLET)
     Route: 048
  7. DOMPERIDONE [Interacting]
     Active Substance: DOMPERIDONE
     Indication: Product used for unknown indication
     Dosage: UNK
     Route: 065
  8. DOMPERIDONE [Interacting]
     Active Substance: DOMPERIDONE
     Dosage: UNK
     Route: 065
  9. DOMPERIDONE [Interacting]
     Active Substance: DOMPERIDONE
     Dosage: UNK
     Route: 065
  10. DOMPERIDONE [Interacting]
     Active Substance: DOMPERIDONE
     Dosage: UNK
     Route: 065
  11. DOMPERIDONE [Interacting]
     Active Substance: DOMPERIDONE
     Dosage: UNK (FILM-COATED TABLET )
     Route: 048
  12. DOMPERIDONE [Interacting]
     Active Substance: DOMPERIDONE
     Dosage: UNK
     Route: 048
  13. DOMPERIDONE [Interacting]
     Active Substance: DOMPERIDONE
     Dosage: UNK (START DATE: 19 DEC 2021)
     Route: 065
  14. LANSOPRAZOLE [Interacting]
     Active Substance: LANSOPRAZOLE
     Indication: Reflux laryngitis
     Dosage: UNK
     Route: 065
  15. LANSOPRAZOLE [Interacting]
     Active Substance: LANSOPRAZOLE
     Dosage: UNK
     Route: 065
  16. LANSOPRAZOLE [Interacting]
     Active Substance: LANSOPRAZOLE
     Dosage: UNK
     Route: 065
  17. LANSOPRAZOLE [Interacting]
     Active Substance: LANSOPRAZOLE
     Dosage: UNK
     Route: 065
  18. LANSOPRAZOLE [Interacting]
     Active Substance: LANSOPRAZOLE
     Dosage: UNK (START DATE: 19 DEC 2021)
     Route: 065
  19. MODERNA COVID-19 VACCINE [Interacting]
     Active Substance: ELASOMERAN
     Indication: COVID-19 immunisation
     Dosage: 1 DOSAGE FORM SINGLE (START DATE AND STOP DATES: 04 DEC 2021) (DOSE 3B) INJECTION
     Route: 030
  20. MODERNA COVID-19 VACCINE [Interacting]
     Active Substance: ELASOMERAN
     Dosage: 1 DOSAGE FORM, SINGLE (START DATE AND STOP DATES: 04 DEC 2021))
     Route: 065
  21. TRIMETHOPRIM [Interacting]
     Active Substance: TRIMETHOPRIM
     Indication: Urinary tract infection
     Dosage: 200 MILLIGRAM PER DAY, QD (200 MG, QD (200 MILLIGRAM, ONCE A DAY) )
     Route: 048
     Dates: start: 20190118, end: 20190120
  22. TRIMETHOPRIM [Interacting]
     Active Substance: TRIMETHOPRIM
     Dosage: 400 MILLIGRAM, QD
     Route: 048
     Dates: start: 20190118, end: 20190120
  23. TRIMETHOPRIM [Interacting]
     Active Substance: TRIMETHOPRIM
     Dosage: UNK
     Route: 048
  24. TRIMETHOPRIM [Interacting]
     Active Substance: TRIMETHOPRIM
     Dosage: 1200 MILLIGRAM
     Route: 065
  25. TRIMETHOPRIM [Interacting]
     Active Substance: TRIMETHOPRIM
     Dosage: 1200 MILLIGRAM PER DAY
     Route: 065
     Dates: start: 20190118
  26. TRIMETHOPRIM [Interacting]
     Active Substance: TRIMETHOPRIM
     Dosage: 400 MILLIGRAM PER DAY (400 MILLIGRAM, ONCE A DAY)
     Route: 048
     Dates: start: 20190118, end: 20190120
  27. TRIMETHOPRIM [Interacting]
     Active Substance: TRIMETHOPRIM
     Dosage: UNK, UNK MILLIGRAM
     Route: 048
  28. TRIMETHOPRIM [Interacting]
     Active Substance: TRIMETHOPRIM
     Dosage: 200 MILLIGRAM, QD
     Route: 048
     Dates: start: 20190118, end: 20190120
  29. TRIMETHOPRIM [Interacting]
     Active Substance: TRIMETHOPRIM
     Dosage: UNK
     Route: 065
  30. TRIMETHOPRIM [Interacting]
     Active Substance: TRIMETHOPRIM
     Dosage: 1200 MILLIGRAM, UNKNOWN
     Route: 065
  31. BUTYLSCOPOLAMINE BROMIDE [Interacting]
     Active Substance: BUTYLSCOPOLAMINE BROMIDE
     Indication: Product used for unknown indication
     Dosage: UNK (START DATE: 19 DEC 2021)
     Route: 065
  32. BECLOMETHASONE DIPROPIONATE [Concomitant]
     Active Substance: BECLOMETHASONE DIPROPIONATE
     Indication: Product used for unknown indication
     Dosage: UNK(146)
     Route: 065
  33. BECLOMETHASONE DIPROPIONATE [Concomitant]
     Active Substance: BECLOMETHASONE DIPROPIONATE
     Dosage: UNK
     Route: 065
  34. DULOXETINE [Concomitant]
     Active Substance: DULOXETINE
     Indication: Product used for unknown indication
     Dosage: UNK
     Route: 065
  35. DULOXETINE [Concomitant]
     Active Substance: DULOXETINE
     Dosage: UNK
     Route: 065
  36. DULOXETINE [Concomitant]
     Active Substance: DULOXETINE
     Dosage: UNK UNK, (UNKNOWN FREQ)
     Route: 065

REACTIONS (25)
  - Food poisoning [Not Recovered/Not Resolved]
  - Nightmare [Not Recovered/Not Resolved]
  - Gastrointestinal pain [Not Recovered/Not Resolved]
  - Contusion [Not Recovered/Not Resolved]
  - Illness [Recovered/Resolved]
  - Illness [Unknown]
  - Blood sodium decreased [Unknown]
  - Blood potassium decreased [Unknown]
  - Peripheral swelling [Unknown]
  - Diarrhoea [Recovered/Resolved]
  - Diarrhoea [Recovered/Resolved]
  - Irritable bowel syndrome [Unknown]
  - Vomiting [Unknown]
  - Condition aggravated [Unknown]
  - Mucosal inflammation [Recovered/Resolved]
  - Genital ulceration [Recovered/Resolved]
  - Genital pain [Recovered/Resolved]
  - Abdominal pain [Recovered/Resolved]
  - Abdominal pain upper [Recovered/Resolved]
  - Oral pain [Recovered/Resolved]
  - Feeling abnormal [Unknown]
  - Malaise [Unknown]
  - Inflammatory marker increased [Unknown]
  - Abdominal distension [Unknown]
  - Drug interaction [Unknown]

NARRATIVE: CASE EVENT DATE: 20190121
